FAERS Safety Report 11295020 (Version 1)
Quarter: 2015Q3

REPORT INFORMATION
  Report Type: Spontaneous
  Country: US (occurrence: None)
  Receive Date: 20150722
  Receipt Date: 20150722
  Transmission Date: 20151125
  Serious: Yes (Life-Threatening, Hospitalization)
  Sender: FDA-Public Use
  Company Number: None

PATIENT
  Age: 42 Year
  Sex: Female
  Weight: 129 kg

DRUGS (2)
  1. JARDIANCE [Concomitant]
     Active Substance: EMPAGLIFLOZIN
  2. JARDIANCE [Suspect]
     Active Substance: EMPAGLIFLOZIN
     Indication: TYPE 2 DIABETES MELLITUS
     Route: 048
     Dates: start: 20150622, end: 20150625

REACTIONS (17)
  - Diarrhoea [None]
  - Wound [None]
  - Vomiting [None]
  - Diabetic ketoacidosis [None]
  - Hypotension [None]
  - Dialysis [None]
  - Blood glucose increased [None]
  - Pollakiuria [None]
  - Tachycardia [None]
  - Blood glucose decreased [None]
  - Ammonia increased [None]
  - Nausea [None]
  - Acute kidney injury [None]
  - Loss of consciousness [None]
  - Metabolic acidosis [None]
  - Diabetes mellitus inadequate control [None]
  - Tachypnoea [None]

NARRATIVE: CASE EVENT DATE: 20150626
